FAERS Safety Report 14922706 (Version 4)
Quarter: 2019Q1

REPORT INFORMATION
  Report Type: Spontaneous
  Country: US (occurrence: US)
  Receive Date: 20180522
  Receipt Date: 20190321
  Transmission Date: 20190417
  Serious: No
  Sender: FDA-Public Use
  Company Number: US-PFIZER INC-2018207120

PATIENT
  Age: 62 Year
  Sex: Female
  Weight: 83.46 kg

DRUGS (2)
  1. REVATIO [Suspect]
     Active Substance: SILDENAFIL CITRATE
     Indication: PULMONARY HYPERTENSION
     Dosage: 20 MG, 3X/DAY
     Route: 048
     Dates: start: 20180509
  2. REVATIO [Suspect]
     Active Substance: SILDENAFIL CITRATE
     Dosage: 20 MG, 3X/DAY
     Route: 048
     Dates: start: 20180515

REACTIONS (10)
  - Jaw disorder [Unknown]
  - Erythema [Recovering/Resolving]
  - Gingival bleeding [Unknown]
  - Pruritus [Recovering/Resolving]
  - Blister [Recovering/Resolving]
  - Drug hypersensitivity [Unknown]
  - Headache [Unknown]
  - Swelling [Unknown]
  - Dyspnoea [Unknown]
  - Rash [Recovered/Resolved]

NARRATIVE: CASE EVENT DATE: 201805
